FAERS Safety Report 10366819 (Version 1)
Quarter: 2014Q3

REPORT INFORMATION
  Report Type: Spontaneous
  Country: JP (occurrence: JP)
  Receive Date: 20140807
  Receipt Date: 20140807
  Transmission Date: 20150326
  Serious: Yes (Other)
  Sender: FDA-Public Use
  Company Number: JP-UCBSA-2014007498

PATIENT
  Sex: Female

DRUGS (4)
  1. KEPPRA [Suspect]
     Active Substance: LEVETIRACETAM
     Dosage: 250 MG, 2X/DAY (BID)
     Route: 048
     Dates: start: 2014
  2. ZONISAMIDE. [Concomitant]
     Active Substance: ZONISAMIDE
     Indication: CONVULSION
     Dosage: UNK
     Dates: start: 2014
  3. KEPPRA [Suspect]
     Active Substance: LEVETIRACETAM
     Indication: CONVULSION
     Dosage: 500 MG, 2X/DAY (BID)
     Route: 048
     Dates: start: 2014, end: 2014
  4. SODIUM VALPROATE [Concomitant]
     Active Substance: VALPROATE SODIUM
     Indication: CONVULSION
     Dosage: UNK
     Dates: start: 2014, end: 2014

REACTIONS (2)
  - Coma [Unknown]
  - Convulsion [Unknown]

NARRATIVE: CASE EVENT DATE: 2014
